FAERS Safety Report 6706648-3 (Version None)
Quarter: 2010Q2

REPORT INFORMATION
  Report Type: 
  Country: None (occurrence: None)
  Receive Date: 20100503
  Receipt Date: 20100427
  Transmission Date: 20101027
  Serious: Yes (Other)
  Sender: FDA-Public Use
  Company Number: EG-ROCHE-699882

PATIENT
  Sex: Male
  Weight: 67 kg

DRUGS (4)
  1. TOCILIZUMAB [Suspect]
     Indication: RHEUMATOID ARTHRITIS
     Dosage: FORM: VIAL. LAST DOSE PRIOR TO SAE: 29 MARCH 2010.
     Route: 042
     Dates: start: 20100329
  2. TRIAMCINOLONE [Concomitant]
     Dosage: REPORTED: TRIMICINOLONE.
     Dates: start: 20070101
  3. RANITIDINE [Concomitant]
     Dosage: REPORTED: RANTIDINE. FREQUENCY: 1X2
     Dates: start: 20070101
  4. DICLOFENAC SODIUM [Concomitant]
     Dosage: FREQUECNY: 1X1
     Dates: start: 20070101

REACTIONS (2)
  - ARTHRALGIA [None]
  - JOINT EFFUSION [None]
